FAERS Safety Report 9003665 (Version 1)
Quarter: 2013Q1

REPORT INFORMATION
  Report Type: Spontaneous
  Country: US (occurrence: US)
  Receive Date: 20130108
  Receipt Date: 20130108
  Transmission Date: 20140127
  Serious: No
  Sender: FDA-Public Use
  Company Number: US-GLAXOSMITHKLINE-A0957332A

PATIENT
  Age: 64 Year
  Sex: Male
  Weight: 82.3 kg

DRUGS (9)
  1. LOVAZA [Suspect]
     Indication: LOW DENSITY LIPOPROTEIN INCREASED
     Dosage: 1G TWICE PER DAY
     Route: 048
     Dates: start: 201110
  2. TRAMADOL [Concomitant]
  3. BABY ASPIRIN [Concomitant]
  4. ZYRTEC [Concomitant]
  5. FLUTICASONE PROPIONATE [Concomitant]
  6. MULTIVITAMIN [Concomitant]
  7. NUTRITIONAL SUPPLEMENT [Concomitant]
  8. OSTEO BI-FLEX [Concomitant]
  9. PROBIOTICS [Concomitant]

REACTIONS (1)
  - Low density lipoprotein increased [Recovering/Resolving]
